FAERS Safety Report 5954312-0 (Version None)
Quarter: 2008Q4

REPORT INFORMATION
  Report Type: 
  Country: None (occurrence: None)
  Receive Date: 20081113
  Receipt Date: 20081113
  Transmission Date: 20090506
  Serious: Yes (Hospitalization)
  Sender: FDA-Public Use
  Company Number: None

PATIENT
  Age: 38 Year
  Sex: Female
  Weight: 97.5234 kg

DRUGS (2)
  1. OCELLA BAYER [Suspect]
     Indication: ENDOMETRIOSIS
     Dosage: ONE PILL DAILY PO
     Route: 048
     Dates: start: 20080728, end: 20080818
  2. WELLBUTRIN XL [Concomitant]

REACTIONS (7)
  - BREAST TENDERNESS [None]
  - CONDITION AGGRAVATED [None]
  - DEPRESSION [None]
  - HEADACHE [None]
  - MOOD ALTERED [None]
  - MUSCLE SPASMS [None]
  - PRODUCT QUALITY ISSUE [None]
